FAERS Safety Report 16881437 (Version 1)
Quarter: 2019Q4

REPORT INFORMATION
  Report Type: Spontaneous
  Country: US (occurrence: US)
  Receive Date: 20191003
  Receipt Date: 20191003
  Transmission Date: 20200122
  Serious: Yes (Hospitalization)
  Sender: FDA-Public Use
  Company Number: None

PATIENT
  Age: 79 Year
  Sex: Female
  Weight: 76.05 kg

DRUGS (10)
  1. KETAMINE [Concomitant]
     Active Substance: KETAMINE
     Dates: start: 20190311, end: 20190311
  2. GABAPENTIN. [Concomitant]
     Active Substance: GABAPENTIN
     Dates: start: 20190311, end: 20190311
  3. LIDOCAINE. [Suspect]
     Active Substance: LIDOCAINE
     Indication: POSTOPERATIVE ANALGESIA
     Dosage: ?          OTHER FREQUENCY:1.1 MG/MIN;?
     Route: 041
     Dates: start: 20190311, end: 20190312
  4. MAGNESIUM [Concomitant]
     Active Substance: MAGNESIUM
     Dates: start: 20190311, end: 20190311
  5. VANCOMYCIN [Concomitant]
     Active Substance: VANCOMYCIN
     Dates: start: 20190311, end: 20190311
  6. NEOSTIGMINE. [Concomitant]
     Active Substance: NEOSTIGMINE METHYLSULFATE
     Dates: start: 20190311, end: 20190311
  7. ROCURONIUM [Concomitant]
     Active Substance: ROCURONIUM BROMIDE
     Dates: start: 20190311, end: 20190311
  8. PROPOFOL. [Concomitant]
     Active Substance: PROPOFOL
     Dates: start: 20190311, end: 20190311
  9. MIDAZOLAM [Concomitant]
     Active Substance: MIDAZOLAM HYDROCHLORIDE
     Dates: start: 20190311, end: 20190311
  10. ACETAMINOPHEN. [Concomitant]
     Active Substance: ACETAMINOPHEN
     Dates: start: 20190311, end: 20190311

REACTIONS (1)
  - Vision blurred [None]

NARRATIVE: CASE EVENT DATE: 20190312
